FAERS Safety Report 14323511 (Version 3)
Quarter: 2018Q2

REPORT INFORMATION
  Report Type: Report from Study
  Country: None (occurrence: US)
  Receive Date: 20171226
  Receipt Date: 20180427
  Transmission Date: 20180711
  Serious: Yes (Hospitalization, Other)
  Sender: FDA-Public Use
  Company Number: US-ABBVIE-16K-163-1783883-00

PATIENT
  Sex: Male
  Weight: 88.53 kg

DRUGS (8)
  1. CLONAZEPAM. [Concomitant]
     Active Substance: CLONAZEPAM
     Indication: INSOMNIA
  2. TYLENOL [Concomitant]
     Active Substance: ACETAMINOPHEN
     Indication: NASOPHARYNGITIS
  3. KRILL OIL [Concomitant]
     Active Substance: DIETARY SUPPLEMENT
     Indication: CARDIOVASCULAR EVENT PROPHYLAXIS
  4. CLONAZEPAM. [Concomitant]
     Active Substance: CLONAZEPAM
     Indication: ANXIETY
  5. HUMIRA [Suspect]
     Active Substance: ADALIMUMAB
     Indication: CROHN^S DISEASE
     Route: 058
     Dates: start: 2016, end: 2016
  6. IRON [Concomitant]
     Active Substance: IRON
     Indication: MINERAL SUPPLEMENTATION
  7. HUMIRA [Suspect]
     Active Substance: ADALIMUMAB
     Route: 058
     Dates: start: 2017
  8. LIALDA [Concomitant]
     Active Substance: MESALAMINE
     Indication: CROHN^S DISEASE

REACTIONS (10)
  - Psoriasis [Recovered/Resolved]
  - Intestinal perforation [Recovered/Resolved]
  - Peritonitis [Recovered/Resolved]
  - Acne [Recovered/Resolved]
  - Weight increased [Not Recovered/Not Resolved]
  - Myalgia [Recovered/Resolved]
  - Crohn^s disease [Recovered/Resolved]
  - Incisional hernia [Not Recovered/Not Resolved]
  - Nasopharyngitis [Recovering/Resolving]
  - Muscle fatigue [Unknown]

NARRATIVE: CASE EVENT DATE: 2016
